FAERS Safety Report 4528540-5 (Version None)
Quarter: 2004Q4

REPORT INFORMATION
  Report Type: 
  Country: None (occurrence: None)
  Receive Date: 20041216
  Receipt Date: 20041122
  Transmission Date: 20050328
  Serious: Yes (Hospitalization, Other)
  Sender: FDA-Public Use
  Company Number: US-BRISTOL-MYERS SQUIBB COMPANY-12772976

PATIENT
  Age: 64 Year
  Sex: Male

DRUGS (14)
  1. CETUXIMAB [Suspect]
     Indication: OESOPHAGEAL CARCINOMA
     Dosage: THERAPY INITIATED 01-OCT-2004,GIVEN WEEKLY WEEKS 1-8
     Route: 042
     Dates: start: 20041112, end: 20041112
  2. CISPLATIN [Suspect]
     Indication: OESOPHAGEAL CARCINOMA
     Dosage: THERAPY INITIATED 08-OCT-04,GIVEN ON WEEKS 1,2,4, AND 5
     Route: 042
     Dates: start: 20041112, end: 20041112
  3. IRINOTECAN [Suspect]
     Indication: OESOPHAGEAL CARCINOMA
     Dosage: THERAPY INITIATED 08-OCT-04,GIVEN WEEK 1,2,4 AND 5
     Route: 042
     Dates: start: 20041112, end: 20041112
  4. RADIATION THERAPY [Concomitant]
     Indication: OESOPHAGEAL CARCINOMA
     Dosage: DOSE 180 CGY-CENTOGRAY (DAY 15 WEEK 1-5). COMPLETED THERAPY 17-NOV-04
     Dates: start: 20041007, end: 20041117
  5. ZOFRAN [Concomitant]
  6. PROTONIX [Concomitant]
  7. M.V.I. [Concomitant]
  8. MICARDIS [Concomitant]
  9. LOMOTIL [Concomitant]
  10. KAOPECTATE [Concomitant]
  11. HYDROCHLOROTHIAZIDE [Concomitant]
  12. COMPAZINE [Concomitant]
  13. CLINDAMYCIN [Concomitant]
     Dosage: 1% GEL
  14. ATIVAN [Concomitant]

REACTIONS (5)
  - ARRHYTHMIA [None]
  - CHEST PAIN [None]
  - DIZZINESS [None]
  - FATIGUE [None]
  - FEBRILE NEUTROPENIA [None]
